FAERS Safety Report 7718337-7 (Version None)
Quarter: 2011Q3

REPORT INFORMATION
  Report Type: 
  Country: None (occurrence: None)
  Receive Date: 20110817
  Receipt Date: 20110303
  Transmission Date: 20111222
  Serious: Yes (Other)
  Sender: FDA-Public Use
  Company Number: 20109048

PATIENT
  Sex: Female

DRUGS (4)
  1. SUFENTANIL CITRATE [Concomitant]
  2. MORPHINE [Concomitant]
  3. BUPIVACAINE HCL [Concomitant]
  4. LIORESAL [Suspect]
     Indication: MUSCLE SPASTICITY
     Dosage: 226.38 MCG, DAILY, INTRATHECAL
     Route: 037

REACTIONS (2)
  - PAIN [None]
  - THERAPEUTIC RESPONSE DECREASED [None]
